FAERS Safety Report 25842669 (Version 1)
Quarter: 2025Q3

REPORT INFORMATION
  Report Type: Spontaneous
  Country: GB (occurrence: GB)
  Receive Date: 20250924
  Receipt Date: 20250924
  Transmission Date: 20251021
  Serious: Yes (Life-Threatening, Hospitalization, Other)
  Sender: ORGANON
  Company Number: GB-AstraZeneca-2024A046816

PATIENT
  Age: 48 Year
  Sex: Male
  Weight: 91 kg

DRUGS (16)
  1. ALENDRONATE SODIUM [Suspect]
     Active Substance: ALENDRONATE SODIUM
  2. VAXZEVRIA [Suspect]
     Active Substance: AZD-1222
     Route: 030
     Dates: start: 20210305
  3. PHENOBARBITAL [Concomitant]
     Active Substance: PHENOBARBITAL
  4. ACETAMINOPHEN [Concomitant]
     Active Substance: ACETAMINOPHEN
  5. THIAMINE [Concomitant]
     Active Substance: THIAMINE
  6. LACOSAMIDE [Concomitant]
     Active Substance: LACOSAMIDE
  7. MIRABEGRON [Concomitant]
     Active Substance: MIRABEGRON
  8. GABAPENTIN [Concomitant]
     Active Substance: GABAPENTIN
  9. BUDESONIDE [Concomitant]
     Active Substance: BUDESONIDE
  10. ALBUTEROL [Concomitant]
     Active Substance: ALBUTEROL
  11. CLARITHROMYCIN [Concomitant]
     Active Substance: CLARITHROMYCIN
  12. LEVETIRACETAM [Concomitant]
     Active Substance: LEVETIRACETAM
  13. PROPOFOL [Concomitant]
     Active Substance: PROPOFOL
  14. KETAMINE [Concomitant]
     Active Substance: KETAMINE
  15. MIDAZOLAM [Concomitant]
     Active Substance: MIDAZOLAM
  16. FUROSEMIDE [Concomitant]
     Active Substance: FUROSEMIDE

REACTIONS (56)
  - Brief resolved unexplained event [Unknown]
  - Meningitis [Unknown]
  - Seizure [Unknown]
  - Encephalitis [Unknown]
  - Atrial fibrillation [Unknown]
  - Left ventricular hypertrophy [Unknown]
  - Brain injury [Unknown]
  - Syncope [Unknown]
  - Fall [Unknown]
  - Bacterial test positive [Unknown]
  - Headache [Unknown]
  - Tonic clonic movements [Unknown]
  - Fungal infection [Unknown]
  - Bacteraemia [Unknown]
  - Memory impairment [Unknown]
  - Pyrexia [Unknown]
  - Tachycardia [Unknown]
  - Otitis externa [Unknown]
  - Lower respiratory tract infection [Unknown]
  - Hallucination [Unknown]
  - Myelopathy [Unknown]
  - Intensive care unit acquired weakness [Unknown]
  - COVID-19 [Unknown]
  - Buttock injury [Unknown]
  - Vasogenic cerebral oedema [Unknown]
  - Visual impairment [Unknown]
  - Cognitive disorder [Unknown]
  - Spinal pain [Unknown]
  - Testicular pain [Unknown]
  - Arthralgia [Unknown]
  - Arthritis [Unknown]
  - Diabetes mellitus [Unknown]
  - Joint dislocation [Unknown]
  - Nystagmus [Unknown]
  - Tinnitus [Unknown]
  - Oropharyngeal pain [Unknown]
  - Delirium [Unknown]
  - Encephalomyelitis [Unknown]
  - Asthma [Unknown]
  - Tremor [Unknown]
  - Brain fog [Unknown]
  - Encephalopathy [Unknown]
  - Urinary incontinence [Unknown]
  - Cough [Unknown]
  - VIIth nerve injury [Unknown]
  - Agitation [Unknown]
  - Back pain [Unknown]
  - Dry eye [Unknown]
  - White blood cell count abnormal [Unknown]
  - Malaise [Unknown]
  - Muscular weakness [Unknown]
  - Spinal osteoarthritis [Unknown]
  - Joint dislocation [Unknown]
  - Amnesia [Unknown]
  - Skin abrasion [Unknown]
  - Immunisation reaction [Unknown]

NARRATIVE: CASE EVENT DATE: 20210312
